FAERS Safety Report 5304529-3 (Version None)
Quarter: 2007Q2

REPORT INFORMATION
  Report Type: 
  Country: None (occurrence: None)
  Receive Date: 20070423
  Receipt Date: 20070412
  Transmission Date: 20071010
  Serious: Yes (Hospitalization, Other)
  Sender: FDA-Public Use
  Company Number: US-AMGEN-US195175

PATIENT
  Sex: Male

DRUGS (3)
  1. EPOGEN [Suspect]
     Indication: DIALYSIS
     Route: 042
     Dates: start: 20030901
  2. CLONIDINE [Concomitant]
  3. GUANABENZ ACETATE [Concomitant]

REACTIONS (4)
  - CONVULSION [None]
  - HYPERTENSION [None]
  - PULMONARY HYPERTENSION [None]
  - ROAD TRAFFIC ACCIDENT [None]
